FAERS Safety Report 12561455 (Version 1)
Quarter: 2016Q3

REPORT INFORMATION
  Report Type: Other
  Country: US (occurrence: US)
  Receive Date: 20160715
  Receipt Date: 20160715
  Transmission Date: 20161109
  Serious: Yes (Death)
  Sender: FDA-Public Use
  Company Number: US-OSMOTICA_PHARMACEUTICAL_US_LLC-POI0573201600030

PATIENT
  Age: 24 Year
  Sex: Male

DRUGS (7)
  1. MIRTAZAPINE. [Suspect]
     Active Substance: MIRTAZAPINE
     Dates: end: 201503
  2. VENLAFAXINE [Suspect]
     Active Substance: VENLAFAXINE HYDROCHLORIDE
     Dates: end: 201503
  3. DIPHENHYDRAMINE. [Suspect]
     Active Substance: DIPHENHYDRAMINE
     Dates: end: 201503
  4. ETHANOL [Suspect]
     Active Substance: ALCOHOL
     Dates: end: 201503
  5. LOPERAMIDE [Concomitant]
     Active Substance: LOPERAMIDE
     Dates: end: 201503
  6. OMEPRAZOLE. [Concomitant]
     Active Substance: OMEPRAZOLE
     Dates: end: 201503
  7. MITRAGYNINE [Suspect]
     Active Substance: MITRAGYNINE
     Dates: end: 201503

REACTIONS (7)
  - Urinary retention [Unknown]
  - Unresponsive to stimuli [None]
  - Pulmonary oedema [Fatal]
  - Pulmonary congestion [Fatal]
  - Toxicity to various agents [Fatal]
  - Drug interaction [Fatal]
  - Vomiting [None]

NARRATIVE: CASE EVENT DATE: 201503
